FAERS Safety Report 20197344 (Version 5)
Quarter: 2022Q4

REPORT INFORMATION
  Report Type: Report from Study
  Country: US (occurrence: US)
  Receive Date: 20211217
  Receipt Date: 20221111
  Transmission Date: 20230112
  Serious: Yes (Other)
  Sender: FDA-Public Use
  Company Number: US-Ipsen Biopharmaceuticals, Inc.-2021-31645

PATIENT
  Age: 59 Year
  Sex: Female

DRUGS (3)
  1. SOMATULINE DEPOT [Suspect]
     Active Substance: LANREOTIDE ACETATE
     Indication: Carcinoid tumour
     Dosage: 120 MG/0.5 ML
     Route: 058
     Dates: start: 202107
  2. SOMATULINE DEPOT [Suspect]
     Active Substance: LANREOTIDE ACETATE
     Indication: Carcinoid tumour of the small bowel
  3. COVID-19 VACCINE NOS [Suspect]
     Active Substance: COVID-19 VACCINE NOS
     Indication: COVID-19 prophylaxis
     Route: 065
     Dates: start: 20221031

REACTIONS (10)
  - Gallbladder disorder [Recovering/Resolving]
  - Metastases to ovary [Recovering/Resolving]
  - Diarrhoea [Recovering/Resolving]
  - Injection site pain [Recovered/Resolved]
  - Injection site mass [Recovering/Resolving]
  - Weight decreased [Not Recovered/Not Resolved]
  - Hot flush [Recovering/Resolving]
  - Injection site pain [Not Recovered/Not Resolved]
  - Injection site bruising [Not Recovered/Not Resolved]
  - Nasopharyngitis [Not Recovered/Not Resolved]

NARRATIVE: CASE EVENT DATE: 20210101
